FAERS Safety Report 19853993 (Version 1)
Quarter: 2021Q3

REPORT INFORMATION
  Report Type: Report from Study
  Country: US (occurrence: US)
  Receive Date: 20210920
  Receipt Date: 20210920
  Transmission Date: 20211014
  Serious: Yes (Other)
  Sender: FDA-Public Use
  Company Number: NVSC2021US211604

PATIENT
  Sex: Male
  Weight: 84.81 kg

DRUGS (1)
  1. ENTRESTO [Suspect]
     Active Substance: SACUBITRIL\VALSARTAN
     Indication: PRODUCT USED FOR UNKNOWN INDICATION
     Dosage: 200 MG (SACUBITRIL:97 MG AND VALSARTAN:103 MG), BID
     Route: 048
     Dates: start: 20210723

REACTIONS (2)
  - Aortic valve disease [Unknown]
  - Weight decreased [Unknown]
